FAERS Safety Report 4540868-1 (Version None)
Quarter: 2004Q4

REPORT INFORMATION
  Report Type: 
  Country: None (occurrence: None)
  Receive Date: 20041228
  Receipt Date: 20041221
  Transmission Date: 20050328
  Serious: Yes (Life-Threatening)
  Sender: FDA-Public Use
  Company Number: 2004AP06386

PATIENT
  Age: 80 Year
  Sex: Male

DRUGS (6)
  1. CASODEX [Suspect]
     Indication: PROSTATE CANCER
     Dosage: 80 MG DAILY PO
     Route: 048
  2. LEUPROLIDE ACETATE [Concomitant]
  3. CIBENOL [Concomitant]
  4. MAGNESIUM OXIDE [Concomitant]
  5. SENNOSIDE [Concomitant]
  6. CERNILTON [Concomitant]

REACTIONS (1)
  - RHABDOMYOLYSIS [None]
